FAERS Safety Report 17579539 (Version 2)
Quarter: 2020Q2

REPORT INFORMATION
  Report Type: Spontaneous
  Country: AU (occurrence: AU)
  Receive Date: 20200325
  Receipt Date: 20200415
  Transmission Date: 20200713
  Serious: Yes (Other)
  Sender: FDA-Public Use
  Company Number: AU-ASTRAZENECA-2020SE40719

PATIENT
  Age: 22896 Day
  Sex: Male
  Weight: 84 kg

DRUGS (3)
  1. FLUTIFORM [Concomitant]
     Active Substance: FLUTICASONE PROPIONATE\FORMOTEROL FUMARATE
     Indication: ASTHMA
     Dosage: 2 PUFFS BD
     Route: 065
  2. SPIRIVA [Concomitant]
     Active Substance: TIOTROPIUM BROMIDE MONOHYDRATE
     Indication: ASTHMA
     Route: 065
  3. FASENRA [Suspect]
     Active Substance: BENRALIZUMAB
     Indication: ASTHMA
     Route: 058
     Dates: start: 201903

REACTIONS (3)
  - Rhinorrhoea [Unknown]
  - Nasal cavity cancer [Recovering/Resolving]
  - Nasal obstruction [Unknown]

NARRATIVE: CASE EVENT DATE: 20191015
